FAERS Safety Report 11204853 (Version 1)
Quarter: 2015Q2

REPORT INFORMATION
  Report Type: Spontaneous
  Country: US (occurrence: None)
  Receive Date: 20150618
  Receipt Date: 20150618
  Transmission Date: 20150821
  Serious: Yes (Hospitalization)
  Sender: FDA-Public Use
  Company Number: None

PATIENT
  Age: 69 Year
  Sex: Male
  Weight: 125 kg

DRUGS (2)
  1. CARVEDILOL. [Suspect]
     Active Substance: CARVEDILOL
     Indication: CARDIAC FAILURE CONGESTIVE
     Route: 048
     Dates: start: 20110216
  2. FUROSEMIDE. [Suspect]
     Active Substance: FUROSEMIDE
     Indication: CARDIAC FAILURE CONGESTIVE
     Route: 048
     Dates: start: 20050519

REACTIONS (9)
  - Cough [None]
  - Vision blurred [None]
  - Hypotension [None]
  - Fluid overload [None]
  - Dizziness [None]
  - Bedridden [None]
  - Insomnia [None]
  - Nocturia [None]
  - Weight decreased [None]

NARRATIVE: CASE EVENT DATE: 20120703
